FAERS Safety Report 11804620 (Version 5)
Quarter: 2016Q4

REPORT INFORMATION
  Report Type: Report from Study
  Country: GB (occurrence: GB)
  Receive Date: 20151204
  Receipt Date: 20161227
  Transmission Date: 20170206
  Serious: Yes (Life-Threatening, Hospitalization, Other)
  Sender: FDA-Public Use
  Company Number: GB-AMGEN-GBRCT2015118418

PATIENT
  Age: 12 Year
  Sex: Female

DRUGS (31)
  1. SPIRONOLACTONE. [Concomitant]
     Active Substance: SPIRONOLACTONE
     Dosage: 50 MG, BID
     Dates: start: 20151218, end: 20151225
  2. INSULIN [Concomitant]
     Active Substance: INSULIN NOS
     Dosage: 0.1 IU/KG, UNK
     Dates: start: 20151224, end: 201512
  3. CLONAZEPAM. [Concomitant]
     Active Substance: CLONAZEPAM
     Dosage: 0.5 MG, BID
     Route: 048
     Dates: start: 2015, end: 201601
  4. AMILORIDE [Concomitant]
     Active Substance: AMILORIDE
     Dosage: 10 MG, QD
     Route: 048
     Dates: start: 20151204, end: 20151225
  5. HYDROXYZINE [Concomitant]
     Active Substance: HYDROXYZINE\HYDROXYZINE HYDROCHLORIDE
     Dosage: 25 MG, QD
     Route: 048
     Dates: start: 2015
  6. VITAMIN K [Concomitant]
     Active Substance: PHYTONADIONE
     Dosage: 10 MG, QD
     Route: 042
     Dates: start: 20151118, end: 201601
  7. TRANEXAMIC ACID. [Concomitant]
     Active Substance: TRANEXAMIC ACID
     Dosage: TOPICAL TO NOSE, PRN
     Route: 061
     Dates: start: 20151028, end: 201601
  8. 6-MERCAPTOPURINE MONOHYDRATE [Concomitant]
     Active Substance: MERCAPTOPURINE
     Dosage: 100 MG, QD
     Route: 048
     Dates: start: 20151231
  9. FUROSEMIDE. [Concomitant]
     Active Substance: FUROSEMIDE
     Dosage: 30 MG, BID
     Route: 042
     Dates: start: 20151217
  10. MAGNESIUM GLYCEROPHOSPHATE [Concomitant]
     Active Substance: MAGNESIUM GLYCEROPHOSPHATE
     Dosage: 12 MMOL, TDS
     Route: 048
     Dates: start: 2015
  11. FENTANYL. [Concomitant]
     Active Substance: FENTANYL
     Dosage: 200 MUG, Q3WK
     Route: 048
     Dates: start: 2015
  12. LEUPRORELIN [Concomitant]
     Active Substance: LEUPROLIDE ACETATE
     Dosage: 3.75 MG, UNK
     Route: 058
     Dates: start: 20151015, end: 20151114
  13. HYDROCORTISONE. [Concomitant]
     Active Substance: HYDROCORTISONE
     Indication: PROPHYLAXIS
     Dosage: 100 MG, AS NECESSARY
     Route: 042
  14. KETAMINE [Concomitant]
     Active Substance: KETAMINE
     Dosage: 25 MG, QD
     Dates: start: 20151213, end: 20151225
  15. MILRINONE [Concomitant]
     Active Substance: MILRINONE
     Dosage: UNK
     Route: 042
     Dates: start: 20151225, end: 201512
  16. PIRITON [Concomitant]
     Active Substance: CHLORPHENIRAMINE MALEATE
     Indication: PROPHYLAXIS
     Dosage: 10 MG, AS NECESSARY
     Route: 042
  17. VANCOMYCIN [Concomitant]
     Active Substance: VANCOMYCIN
     Dosage: 900 MG, TID
     Route: 042
     Dates: start: 20151222, end: 201512
  18. MELATONIN [Concomitant]
     Active Substance: MELATONIN
     Dosage: 2 MG, QD
     Route: 048
     Dates: start: 20151226
  19. POTASSIUM CHLORIDE. [Concomitant]
     Active Substance: POTASSIUM CHLORIDE
     Dosage: 24 MMOL, TDS
     Route: 048
     Dates: start: 2015
  20. COTRIMOXAZOLE [Concomitant]
     Active Substance: SULFAMETHOXAZOLE\TRIMETHOPRIM
     Indication: PROPHYLAXIS
     Dosage: 480 MG, BID SAT AND SUN
     Route: 048
     Dates: start: 2015
  21. LIGNOCAINE [Concomitant]
     Active Substance: LIDOCAINE HYDROCHLORIDE
     Dosage: PATCH 1 OVER PAINFUL AREA
     Dates: start: 20151125
  22. CYTARABINE. [Concomitant]
     Active Substance: CYTARABINE
     Dosage: 120 MG, QD
     Route: 042
     Dates: start: 20151231, end: 20160117
  23. LORAZEPAM. [Concomitant]
     Active Substance: LORAZEPAM
     Dosage: 0.5 -1MG, QID
     Route: 048
     Dates: start: 20151204
  24. ORAMORPH [Concomitant]
     Active Substance: MORPHINE SULFATE
     Dosage: 20 MG, 2 TO 4 HOURS
     Dates: start: 20151119, end: 20151129
  25. LANSOPRAZOLE. [Concomitant]
     Active Substance: LANSOPRAZOLE
     Dosage: 30 MG, QD
     Route: 048
     Dates: start: 20151230
  26. BLINATUMOMAB [Suspect]
     Active Substance: BLINATUMOMAB
     Indication: B-CELL LYMPHOMA REFRACTORY
     Dosage: 5 MUG/M2, CONTINUING
     Route: 042
     Dates: start: 20151103, end: 20151225
  27. AMITRIPTYLINE [Concomitant]
     Active Substance: AMITRIPTYLINE
     Dosage: 20 MG, QD
     Route: 048
     Dates: start: 20151111, end: 201601
  28. HYOSCINE [Concomitant]
     Active Substance: SCOPOLAMINE
     Dosage: 1 PATCH, EVERY 72 HOURS
     Route: 062
     Dates: start: 20151112, end: 201601
  29. SEVREDOL [Concomitant]
     Active Substance: MORPHINE
     Dosage: 20 MG, 2-4 HOURLY
     Route: 048
     Dates: start: 2015, end: 20151119
  30. MIDAZOLAM [Concomitant]
     Active Substance: MIDAZOLAM\MIDAZOLAM HYDROCHLORIDE
     Dosage: 5 MG, Q2H
     Route: 002
     Dates: start: 2015
  31. BUSCOPAN [Concomitant]
     Active Substance: BUTYLSCOPOLAMINE BROMIDE
     Dosage: 10 MG, QID
     Route: 042
     Dates: start: 2015, end: 201512

REACTIONS (5)
  - Cytokine release syndrome [Recovered/Resolved]
  - Hyperglycaemia [Recovered/Resolved]
  - Urinary retention [Recovered/Resolved]
  - Febrile neutropenia [Recovered/Resolved]
  - Sinus tachycardia [Recovered/Resolved]

NARRATIVE: CASE EVENT DATE: 20151129
